FAERS Safety Report 10103015 (Version 2)
Quarter: 2014Q2

REPORT INFORMATION
  Report Type: Spontaneous
  Country: US (occurrence: US)
  Receive Date: 20140424
  Receipt Date: 20140424
  Transmission Date: 20141212
  Serious: Yes (Hospitalization)
  Sender: FDA-Public Use
  Company Number: US-BRISTOL-MYERS SQUIBB COMPANY-20070868

PATIENT
  Age: 78 Year
  Sex: Female

DRUGS (15)
  1. ELIQUIS [Suspect]
     Indication: ATRIAL FIBRILLATION
  2. SPIRONOLACTONE [Concomitant]
  3. GABAPENTIN [Concomitant]
  4. HYDROQUINONE [Concomitant]
  5. LORTAB [Concomitant]
  6. LISINOPRIL [Concomitant]
  7. XANAX [Concomitant]
  8. SERTRALINE HCL [Concomitant]
     Dosage: 50
  9. METOPROLOL [Concomitant]
  10. EYE DROPS [Concomitant]
     Dosage: AT BEDTIME
  11. FAMOTIDINE [Concomitant]
  12. FAMOTIDINE [Concomitant]
     Dosage: EYE DROPS
  13. CALCIUM + VITAMIN D [Concomitant]
  14. VITAMIN D [Concomitant]
  15. DOCUSATE SODIUM [Concomitant]
     Dosage: AT BEDTIME.

REACTIONS (1)
  - Ischaemic stroke [Unknown]
